FAERS Safety Report 4561420-8 (Version None)
Quarter: 2005Q1

REPORT INFORMATION
  Report Type: 
  Country: None (occurrence: None)
  Receive Date: 20050121
  Receipt Date: 20050110
  Transmission Date: 20050727
  Serious: No
  Sender: FDA-Public Use
  Company Number: 05H-163-0285903-00

PATIENT
  Sex: 0

DRUGS (5)
  1. FENOLDOPAM MESYLATE [Suspect]
     Dosage: 0.025 UG/KG/MIN, DOUBLED EVERY 15 MINS., INFUSION
  2. METHYLPREDNISOLONE SODIUM SUCCINATE [Concomitant]
  3. MYCOPHENOLATE MOFETIL [Concomitant]
  4. CYCLOSPORINE MICROEMULSIFIED [Concomitant]
  5. CALCINEURIN INHIBITORS [Concomitant]

REACTIONS (2)
  - HYPOTENSION [None]
  - SEPSIS [None]
